FAERS Safety Report 25592358 (Version 1)
Quarter: 2025Q3

REPORT INFORMATION
  Report Type: Report from Study
  Country: US (occurrence: US)
  Receive Date: 20250722
  Receipt Date: 20250722
  Transmission Date: 20251021
  Serious: Yes (Hospitalization, Other)
  Sender: BAYER HEALTHCARE PHARMACEUTICALS INC.
  Company Number: US-BAYER-2025A092979

PATIENT
  Age: 59 Year
  Sex: Male

DRUGS (1)
  1. NUBEQA [Suspect]
     Active Substance: DAROLUTAMIDE
     Indication: Hormone-refractory prostate cancer
     Dates: start: 2025, end: 2025

REACTIONS (7)
  - Hospitalisation [Unknown]
  - Mental impairment [Unknown]
  - Dyspnoea [Unknown]
  - Asthenia [Unknown]
  - Full blood count abnormal [Unknown]
  - Fall [Unknown]
  - Treatment noncompliance [Unknown]

NARRATIVE: CASE EVENT DATE: 20250601
